FAERS Safety Report 6938497-5 (Version None)
Quarter: 2010Q3

REPORT INFORMATION
  Report Type: 
  Country: None (occurrence: None)
  Receive Date: 20100824
  Receipt Date: 20100810
  Transmission Date: 20110219
  Serious: Yes (Hospitalization, Other)
  Sender: FDA-Public Use
  Company Number: US-ELI_LILLY_AND_COMPANY-US201008003407

PATIENT
  Age: 37 Year
  Sex: Female

DRUGS (1)
  1. CYMBALTA [Suspect]
     Indication: DEPRESSION
     Dosage: 60 MG, DAILY (1/D)

REACTIONS (13)
  - ASTHENIA [None]
  - COLD SWEAT [None]
  - EYE DISORDER [None]
  - EYE ROLLING [None]
  - FATIGUE [None]
  - HOT FLUSH [None]
  - INCOHERENT [None]
  - LOSS OF CONSCIOUSNESS [None]
  - MUSCLE CONTRACTURE [None]
  - OPISTHOTONUS [None]
  - OXYGEN SATURATION DECREASED [None]
  - PAIN [None]
  - RESTLESSNESS [None]
